FAERS Safety Report 6260983-4 (Version None)
Quarter: 2009Q3

REPORT INFORMATION
  Report Type: 
  Country: None (occurrence: None)
  Receive Date: 20090707
  Receipt Date: 20090702
  Transmission Date: 20100115
  Serious: Yes (Life-Threatening, Hospitalization)
  Sender: FDA-Public Use
  Company Number: 2009SP001733

PATIENT
  Age: 15 Year
  Sex: Female

DRUGS (2)
  1. LUNESTA [Suspect]
     Indication: SLEEP PHASE RHYTHM DISTURBANCE
     Dosage: HS; ORAL
     Route: 048
     Dates: start: 20090623, end: 20090624
  2. TYLENOL (CAPLET) [Suspect]
     Dosage: 35 TAB; 1X; ORAL
     Route: 048
     Dates: start: 20090626, end: 20090626

REACTIONS (10)
  - ABNORMAL BEHAVIOUR [None]
  - CRYING [None]
  - DEPRESSION [None]
  - DYSKINESIA [None]
  - INSOMNIA [None]
  - INTENTIONAL DRUG MISUSE [None]
  - IRRITABILITY [None]
  - PSYCHOMOTOR HYPERACTIVITY [None]
  - SUICIDE ATTEMPT [None]
  - VOMITING [None]
